FAERS Safety Report 4977787-2 (Version None)
Quarter: 2006Q2

REPORT INFORMATION
  Report Type: 
  Country: None (occurrence: None)
  Receive Date: 20060420
  Receipt Date: 20060410
  Transmission Date: 20061013
  Serious: Yes (Life-Threatening)
  Sender: FDA-Public Use
  Company Number: JP-ABBOTT-06P-087-0330565-00

PATIENT
  Age: 81 Year
  Sex: Male

DRUGS (3)
  1. CLARITHROMYCIN [Suspect]
     Indication: UPPER RESPIRATORY TRACT INFLAMMATION
     Route: 048
     Dates: start: 20060206, end: 20060208
  2. CLARITHROMYCIN [Suspect]
     Indication: NASOPHARYNGITIS
  3. HERBAL MEDICINE (TUMURA-MAOUB USHISAISHINTOU) [Concomitant]
     Indication: UPPER RESPIRATORY TRACT INFLAMMATION
     Route: 048
     Dates: start: 20060206, end: 20060208

REACTIONS (1)
  - INTERSTITIAL LUNG DISEASE [None]
